FAERS Safety Report 6725331-1 (Version None)
Quarter: 2010Q2

REPORT INFORMATION
  Report Type: 
  Country: None (occurrence: None)
  Receive Date: 20100514
  Receipt Date: 20100506
  Transmission Date: 20101027
  Serious: Yes (Other)
  Sender: FDA-Public Use
  Company Number: US-B.I. PHARMACEUTICALS,INC./RIDGEFIELD-2010-BP-01971BP

PATIENT
  Sex: Male

DRUGS (1)
  1. FLOMAX [Suspect]
     Indication: PROSTATITIS
     Dosage: 0.4 MG
     Route: 048
     Dates: start: 20100216, end: 20100216

REACTIONS (5)
  - CONTUSION [None]
  - DYSPNOEA [None]
  - PHARYNGEAL OEDEMA [None]
  - SKIN LACERATION [None]
  - SYNCOPE [None]
